FAERS Safety Report 18061625 (Version 1)
Quarter: 2020Q3

REPORT INFORMATION
  Report Type: Spontaneous
  Country: US (occurrence: US)
  Receive Date: 20200723
  Receipt Date: 20200723
  Transmission Date: 20201103
  Serious: No
  Sender: FDA-Public Use
  Company Number: US-TOLMAR, INC.-20US021909

PATIENT
  Age: 63 Year
  Sex: Male

DRUGS (1)
  1. ELIGARD [Suspect]
     Active Substance: LEUPROLIDE ACETATE
     Indication: PROSTATE CANCER
     Dosage: 22.5 MG, Q 3 MONTH
     Route: 030
     Dates: start: 20200706

REACTIONS (3)
  - Incorrect route of product administration [Unknown]
  - Intercepted product storage error [None]
  - Product prescribing error [Unknown]

NARRATIVE: CASE EVENT DATE: 202007
